FAERS Safety Report 5725058-9 (Version None)
Quarter: 2008Q2

REPORT INFORMATION
  Report Type: 
  Country: None (occurrence: None)
  Receive Date: 20080501
  Receipt Date: 20080421
  Transmission Date: 20081010
  Serious: Yes (Disabling)
  Sender: FDA-Public Use
  Company Number: US-ELI_LILLY_AND_COMPANY-US200804005219

PATIENT
  Sex: Female

DRUGS (8)
  1. CYMBALTA [Suspect]
     Indication: NEURALGIA
     Dosage: 120 MG, DAILY (1/D)
  2. CYMBALTA [Suspect]
     Dosage: 120 MG, QOD
  3. CYMBALTA [Suspect]
     Dosage: 60 MG, DAILY (1/D)
  4. ESTROGEN NOS [Concomitant]
     Route: 061
  5. PROMETRIUM [Concomitant]
  6. SIMVASTATIN [Concomitant]
  7. AMBIEN [Concomitant]
     Indication: INSOMNIA
  8. BUSPAR [Concomitant]

REACTIONS (6)
  - BEDRIDDEN [None]
  - DIZZINESS [None]
  - NAUSEA [None]
  - NIGHT SWEATS [None]
  - PSYCHOTIC DISORDER [None]
  - WEIGHT DECREASED [None]
